FAERS Safety Report 7780943-1 (Version None)
Quarter: 2011Q3

REPORT INFORMATION
  Report Type: 
  Country: None (occurrence: None)
  Receive Date: 20110927
  Receipt Date: 20110920
  Transmission Date: 20111222
  Serious: No
  Sender: FDA-Public Use
  Company Number: US-PFIZER INC-2011224017

PATIENT
  Sex: Female

DRUGS (8)
  1. PENICILLIN G BENZATHINE AND PENICILLIN G PROCAINE [Suspect]
     Dosage: UNK
  2. IBUPROFEN [Suspect]
     Dosage: UNK
  3. BACLOFEN [Suspect]
     Dosage: UNK
  4. ACETYLSALICYLIC ACID SRT [Suspect]
     Dosage: UNK
  5. TORADOL [Suspect]
     Dosage: UNK
  6. DILANTIN [Suspect]
     Dosage: UNK
  7. LIDOCAINE HYDROCHLORIDE [Suspect]
     Dosage: UNK
  8. LEXAPRO [Suspect]
     Dosage: UNK

REACTIONS (1)
  - DRUG HYPERSENSITIVITY [None]
